FAERS Safety Report 14200348 (Version 3)
Quarter: 2018Q4

REPORT INFORMATION
  Report Type: Spontaneous
  Country: JP (occurrence: JP)
  Receive Date: 20171117
  Receipt Date: 20181115
  Transmission Date: 20190204
  Serious: Yes (Other)
  Sender: FDA-Public Use
  Company Number: JP-BAUSCH-BL-2017-031594

PATIENT
  Age: 50 Year
  Sex: Female

DRUGS (4)
  1. TALION (JAPAN) [Suspect]
     Active Substance: BEPOTASTINE BESILATE
     Route: 065
     Dates: end: 20170402
  2. TALION (JAPAN) [Suspect]
     Active Substance: BEPOTASTINE BESILATE
     Route: 065
  3. TALION (JAPAN) [Suspect]
     Active Substance: BEPOTASTINE BESILATE
     Indication: SEASONAL ALLERGY
     Route: 048
     Dates: start: 20170106
  4. PATANOL [Suspect]
     Active Substance: OLOPATADINE HYDROCHLORIDE
     Indication: CONJUNCTIVITIS ALLERGIC
     Route: 047
     Dates: end: 20170402

REACTIONS (2)
  - Alopecia universalis [Not Recovered/Not Resolved]
  - Maternal exposure during pregnancy [Recovered/Resolved]

NARRATIVE: CASE EVENT DATE: 20170106
